FAERS Safety Report 7481210-6 (Version None)
Quarter: 2011Q2

REPORT INFORMATION
  Report Type: 
  Country: None (occurrence: None)
  Receive Date: 20110516
  Receipt Date: 20110502
  Transmission Date: 20111010
  Serious: No
  Sender: FDA-Public Use
  Company Number: US-ELI_LILLY_AND_COMPANY-US201101003781

PATIENT
  Sex: Female
  Weight: 68.027 kg

DRUGS (11)
  1. ACETAMINOPHEN AND HYDROCODONE BITARTRATE [Concomitant]
     Dosage: UNK, UNKNOWN
     Route: 065
  2. VITAMIN D [Concomitant]
     Dosage: UNK, UNKNOWN
     Route: 065
  3. FUROSEMIDE [Concomitant]
     Dosage: UNK, UNKNOWN
     Route: 065
  4. KEFLEX [Concomitant]
     Dosage: UNK, UNKNOWN (BEFORE DENTAL WORK)
     Route: 065
  5. METHOTREXATE [Concomitant]
     Dosage: UNK, UNKNOWN
     Route: 065
  6. FORTEO [Suspect]
     Indication: OSTEOPOROSIS
     Dosage: 20 UG, DAILY (1/D)
     Route: 065
     Dates: start: 20100301
  7. CITRACAL + D [Concomitant]
     Dosage: UNK, UNKNOWN
     Route: 065
  8. PAXIL [Concomitant]
     Dosage: UNK, UNKNOWN
     Route: 065
  9. PREDNISONE [Concomitant]
     Dosage: UNK, UNKNOWN
     Route: 065
  10. CENTRUM SILVER [Concomitant]
     Dosage: UNK, UNKNOWN
     Route: 065
  11. DOXEPIN [Concomitant]
     Dosage: UNK, UNKNOWN
     Route: 065

REACTIONS (1)
  - BACK PAIN [None]
